FAERS Safety Report 25805115 (Version 2)
Quarter: 2025Q3

REPORT INFORMATION
  Report Type: Spontaneous
  Country: EU (occurrence: EU)
  Receive Date: 20250916
  Receipt Date: 20250930
  Transmission Date: 20251021
  Serious: Yes (Death, Life-Threatening, Hospitalization, Other)
  Sender: BAUSCH AND LOMB
  Company Number: EU-BAUSCH-BH-2025-017369

PATIENT
  Age: 74 Year
  Sex: Female

DRUGS (4)
  1. DIAZEPAM [Suspect]
     Active Substance: DIAZEPAM
     Indication: Delirium
     Route: 065
  2. EFGARTIGIMOD ALFA [Suspect]
     Active Substance: EFGARTIGIMOD ALFA
     Indication: Chronic inflammatory demyelinating polyradiculoneuropathy
     Dates: start: 20250729, end: 20250826
  3. MORPHINE [Suspect]
     Active Substance: MORPHINE
     Indication: Product used for unknown indication
     Route: 065
  4. FLUMAZENIL [Suspect]
     Active Substance: FLUMAZENIL
     Indication: Somnolence
     Route: 065

REACTIONS (12)
  - Respiratory failure [Fatal]
  - Chronic inflammatory demyelinating polyradiculoneuropathy [Not Recovered/Not Resolved]
  - Infection [Unknown]
  - Delirium [Unknown]
  - Neurological decompensation [Unknown]
  - Fall [Unknown]
  - Hypercapnia [Unknown]
  - Epilepsy [Unknown]
  - Malaise [Unknown]
  - Pneumonia [Unknown]
  - Somnolence [Unknown]
  - Drug ineffective [Unknown]

NARRATIVE: CASE EVENT DATE: 20250801
